FAERS Safety Report 26181669 (Version 1)
Quarter: 2025Q4

REPORT INFORMATION
  Report Type: Spontaneous
  Country: US (occurrence: US)
  Receive Date: 20251221
  Receipt Date: 20251221
  Transmission Date: 20260117
  Serious: No
  Sender: GLAUKOS
  Company Number: US-GLK-000715

PATIENT

DRUGS (2)
  1. IDOSE TR [Suspect]
     Active Substance: TRAVOPROST
     Indication: Product used for unknown indication
     Dosage: RIGHT EYE (OD)
     Route: 047
     Dates: start: 20250820, end: 20250820
  2. IDOSE TR [Suspect]
     Active Substance: TRAVOPROST

REACTIONS (1)
  - Dizziness [Not Recovered/Not Resolved]
